FAERS Safety Report 20592892 (Version 1)
Quarter: 2022Q1

REPORT INFORMATION
  Report Type: Report from Study
  Country: US (occurrence: US)
  Receive Date: 20220315
  Receipt Date: 20220315
  Transmission Date: 20220424
  Serious: Yes (Hospitalization, Other)
  Sender: FDA-Public Use
  Company Number: US-ABBVIE-22K-163-4313697-00

PATIENT
  Sex: Male

DRUGS (2)
  1. IMBRUVICA [Suspect]
     Active Substance: IBRUTINIB
     Indication: Mantle cell lymphoma
     Route: 048
     Dates: start: 202201
  2. IMBRUVICA [Suspect]
     Active Substance: IBRUTINIB
     Indication: Non-Hodgkin^s lymphoma stage II

REACTIONS (5)
  - Oropharyngeal discomfort [Recovered/Resolved]
  - Cerebral disorder [Unknown]
  - Brain oedema [Unknown]
  - Hypersensitivity [Unknown]
  - Pain [Unknown]

NARRATIVE: CASE EVENT DATE: 20220101
